FAERS Safety Report 18749161 (Version 4)
Quarter: 2021Q3

REPORT INFORMATION
  Report Type: Report from Study
  Country: US (occurrence: US)
  Receive Date: 20210116
  Receipt Date: 20210806
  Transmission Date: 20211014
  Serious: Yes (Hospitalization, Other)
  Sender: FDA-Public Use
  Company Number: US-TAKEDA-2021TUS001794

PATIENT
  Age: 10 Year
  Sex: Male
  Weight: 38 kg

DRUGS (16)
  1. TEDUGLUTIDE [Suspect]
     Active Substance: TEDUGLUTIDE
     Indication: SHORT-BOWEL SYNDROME
     Dosage: 1.86 MILLIGRAM, QD
     Route: 058
     Dates: start: 20201211
  2. TEDUGLUTIDE [Suspect]
     Active Substance: TEDUGLUTIDE
     Dosage: 1.86 MILLIGRAM, QD
     Route: 058
     Dates: start: 20201212, end: 20210107
  3. TEDUGLUTIDE [Suspect]
     Active Substance: TEDUGLUTIDE
     Dosage: 1.86 MILLIGRAM, QD
     Route: 058
     Dates: start: 20210107, end: 20210110
  4. TEDUGLUTIDE [Suspect]
     Active Substance: TEDUGLUTIDE
     Dosage: 1.9 MILLIGRAM, QD
     Route: 058
     Dates: start: 202012
  5. TEDUGLUTIDE [Suspect]
     Active Substance: TEDUGLUTIDE
     Indication: SHORT-BOWEL SYNDROME
     Dosage: 1.86 MILLIGRAM, QD
     Route: 058
     Dates: start: 20201211
  6. TEDUGLUTIDE [Suspect]
     Active Substance: TEDUGLUTIDE
     Dosage: 1.86 MILLIGRAM, QD
     Route: 058
     Dates: start: 20210107, end: 20210110
  7. TEDUGLUTIDE [Suspect]
     Active Substance: TEDUGLUTIDE
     Dosage: 1.86 MILLIGRAM, QD
     Route: 058
     Dates: start: 20210107, end: 20210110
  8. TEDUGLUTIDE [Suspect]
     Active Substance: TEDUGLUTIDE
     Dosage: 1.86 MILLIGRAM, QD
     Route: 058
     Dates: start: 20201212, end: 20210107
  9. TEDUGLUTIDE [Suspect]
     Active Substance: TEDUGLUTIDE
     Dosage: 1.86 MILLIGRAM, QD
     Route: 058
     Dates: start: 20210107, end: 20210110
  10. TEDUGLUTIDE [Suspect]
     Active Substance: TEDUGLUTIDE
     Dosage: 1.86 MILLIGRAM, QD
     Route: 058
     Dates: start: 20201212, end: 20210107
  11. TEDUGLUTIDE [Suspect]
     Active Substance: TEDUGLUTIDE
     Dosage: 1.9 MILLIGRAM, QD
     Route: 058
     Dates: start: 202012
  12. TEDUGLUTIDE [Suspect]
     Active Substance: TEDUGLUTIDE
     Indication: SHORT-BOWEL SYNDROME
     Dosage: 1.86 MILLIGRAM, QD
     Route: 058
     Dates: start: 20201211
  13. TEDUGLUTIDE [Suspect]
     Active Substance: TEDUGLUTIDE
     Dosage: 1.9 MILLIGRAM, QD
     Route: 058
     Dates: start: 202012
  14. TEDUGLUTIDE [Suspect]
     Active Substance: TEDUGLUTIDE
     Indication: SHORT-BOWEL SYNDROME
     Dosage: 1.86 MILLIGRAM, QD
     Route: 058
     Dates: start: 20201211
  15. TEDUGLUTIDE [Suspect]
     Active Substance: TEDUGLUTIDE
     Dosage: 1.86 MILLIGRAM, QD
     Route: 058
     Dates: start: 20201212, end: 20210107
  16. TEDUGLUTIDE [Suspect]
     Active Substance: TEDUGLUTIDE
     Dosage: 1.9 MILLIGRAM, QD
     Route: 058
     Dates: start: 202012

REACTIONS (3)
  - Pyrexia [Unknown]
  - Vascular device infection [Recovering/Resolving]
  - Klebsiella sepsis [Unknown]

NARRATIVE: CASE EVENT DATE: 20210107
